FAERS Safety Report 7640129-8 (Version None)
Quarter: 2011Q3

REPORT INFORMATION
  Report Type: 
  Country: None (occurrence: None)
  Receive Date: 20110728
  Receipt Date: 20110623
  Transmission Date: 20111222
  Serious: No
  Sender: FDA-Public Use
  Company Number: US-BAYER-2011-055506

PATIENT
  Age: 88 Year
  Sex: Male
  Weight: 70.295 kg

DRUGS (5)
  1. ALEVE (CAPLET) [Suspect]
     Indication: ANALGESIC THERAPY
     Dosage: 2 DF, BID, BOTTLE COUNT 250S
     Route: 048
     Dates: start: 20110601, end: 20110623
  2. ASPIRIN [Concomitant]
  3. CALCIUM ACETATE [Concomitant]
  4. SIMVASTATIN [Concomitant]
  5. FINASTERIDE [Concomitant]

REACTIONS (5)
  - AGITATION [None]
  - URINARY INCONTINENCE [None]
  - ANXIETY [None]
  - DIZZINESS [None]
  - ASTHENIA [None]
